FAERS Safety Report 4582695-5 (Version None)
Quarter: 2005Q1

REPORT INFORMATION
  Report Type: 
  Country: None (occurrence: None)
  Receive Date: 20050215
  Receipt Date: 20050209
  Transmission Date: 20050727
  Serious: Yes (Other)
  Sender: FDA-Public Use
  Company Number: US-GLAXOSMITHKLINE-A0544749A

PATIENT
  Age: 30 Year

DRUGS (1)
  1. SOMINEX MAXIMUM STRENGTH CAPLETS [Suspect]
     Route: 048
     Dates: start: 20050209

REACTIONS (2)
  - INTENTIONAL MISUSE [None]
  - SOMNOLENCE [None]
